FAERS Safety Report 16971143 (Version 8)
Quarter: 2020Q4

REPORT INFORMATION
  Report Type: Report from Study
  Country: US (occurrence: US)
  Receive Date: 20191029
  Receipt Date: 20201217
  Transmission Date: 20210113
  Serious: Yes (Hospitalization)
  Sender: FDA-Public Use
  Company Number: US-SHIRE-US201936073

PATIENT
  Age: 52 Year
  Sex: Female

DRUGS (12)
  1. TEDUGLUTIDE [Suspect]
     Active Substance: TEDUGLUTIDE
     Indication: SHORT-BOWEL SYNDROME
     Dosage: 0.2350, QD
     Route: 058
     Dates: start: 20190911
  2. TEDUGLUTIDE [Suspect]
     Active Substance: TEDUGLUTIDE
     Dosage: 2.35 MILLIGRAM, QD
     Route: 058
     Dates: start: 201909
  3. TEDUGLUTIDE [Suspect]
     Active Substance: TEDUGLUTIDE
     Dosage: 2.4 MILLIGRAM, QD
     Route: 058
     Dates: start: 20200910
  4. TEDUGLUTIDE [Suspect]
     Active Substance: TEDUGLUTIDE
     Dosage: 2.4 MILLIGRAM, QD
     Route: 058
     Dates: start: 20200910
  5. TEDUGLUTIDE [Suspect]
     Active Substance: TEDUGLUTIDE
     Dosage: 2.35 MILLIGRAM, QD
     Route: 058
     Dates: start: 201909
  6. TEDUGLUTIDE [Suspect]
     Active Substance: TEDUGLUTIDE
     Indication: SHORT-BOWEL SYNDROME
     Dosage: 0.2350, QD
     Route: 058
     Dates: start: 20190911
  7. TEDUGLUTIDE [Suspect]
     Active Substance: TEDUGLUTIDE
     Dosage: 2.35 MILLIGRAM, QD
     Route: 058
     Dates: start: 201909
  8. TEDUGLUTIDE [Suspect]
     Active Substance: TEDUGLUTIDE
     Dosage: 2.35 MILLIGRAM, QD
     Route: 058
     Dates: start: 201909
  9. TEDUGLUTIDE [Suspect]
     Active Substance: TEDUGLUTIDE
     Indication: SHORT-BOWEL SYNDROME
     Dosage: 0.2350, QD
     Route: 058
     Dates: start: 20190911
  10. TEDUGLUTIDE [Suspect]
     Active Substance: TEDUGLUTIDE
     Indication: SHORT-BOWEL SYNDROME
     Dosage: 0.2350, QD
     Route: 058
     Dates: start: 20190911
  11. TEDUGLUTIDE [Suspect]
     Active Substance: TEDUGLUTIDE
     Dosage: 2.4 MILLIGRAM, QD
     Route: 058
     Dates: start: 20200910
  12. TEDUGLUTIDE [Suspect]
     Active Substance: TEDUGLUTIDE
     Dosage: 2.4 MILLIGRAM, QD
     Route: 058
     Dates: start: 20200910

REACTIONS (5)
  - Hospitalisation [Recovered/Resolved]
  - Mental disorder [Unknown]
  - Abdominal discomfort [Unknown]
  - Adverse event [Unknown]
  - Nausea [Unknown]

NARRATIVE: CASE EVENT DATE: 201910
